FAERS Safety Report 6841507-7 (Version None)
Quarter: 2010Q3

REPORT INFORMATION
  Report Type: 
  Country: None (occurrence: None)
  Receive Date: 20100709
  Receipt Date: 20100630
  Transmission Date: 20110219
  Serious: Yes (Other)
  Sender: FDA-Public Use
  Company Number: 014100

PATIENT
  Sex: Female
  Weight: 58.1 kg

DRUGS (5)
  1. CERTOLIZUMAB PEGOL [Suspect]
     Indication: RHEUMATOID ARTHRITIS
     Dosage: (200 MG 1X/2 WEEKS SUBCUTANEOUS)
     Route: 058
     Dates: start: 20100128, end: 20100419
  2. IBUPROFEN [Concomitant]
  3. PREDNISONE [Concomitant]
  4. CLACIUM WITH VITAMIN D /01233101/ [Concomitant]
  5. BONIVA [Concomitant]

REACTIONS (6)
  - ANAEMIA [None]
  - ASPARTATE AMINOTRANSFERASE INCREASED [None]
  - BLOOD ALBUMIN DECREASED [None]
  - BREAST CANCER STAGE III [None]
  - NEUTROPENIA [None]
  - PLATELET COUNT INCREASED [None]
